FAERS Safety Report 12679947 (Version 2)
Quarter: 2016Q4

REPORT INFORMATION
  Report Type: Spontaneous
  Country: AU (occurrence: AU)
  Receive Date: 20160824
  Receipt Date: 20161108
  Transmission Date: 20170207
  Serious: Yes (Death)
  Sender: FDA-Public Use
  Company Number: AU-CELGENEUS-AUS-2016083621

PATIENT
  Sex: Male
  Weight: 78 kg

DRUGS (1)
  1. ABRAXANE [Suspect]
     Active Substance: PACLITAXEL
     Indication: BLADDER TRANSITIONAL CELL CARCINOMA
     Dosage: 100 MILLIGRAM/SQ. METER
     Route: 041
     Dates: end: 201510

REACTIONS (1)
  - Bladder transitional cell carcinoma [Fatal]
